FAERS Safety Report 7029428-0 (Version None)
Quarter: 2010Q4

REPORT INFORMATION
  Report Type: 
  Country: None (occurrence: None)
  Receive Date: 20101005
  Receipt Date: 20100813
  Transmission Date: 20110411
  Serious: Yes (Hospitalization)
  Sender: FDA-Public Use
  Company Number: JP-SANOFI-AVENTIS-2010SA018581

PATIENT
  Age: 75 Year
  Sex: Male
  Weight: 58 kg

DRUGS (21)
  1. CLOPIDOGREL BISULFATE [Suspect]
     Indication: ANGINA PECTORIS
     Route: 048
     Dates: start: 20100326, end: 20100326
  2. CLOPIDOGREL BISULFATE [Suspect]
     Route: 048
     Dates: start: 20100326, end: 20100326
  3. CLOPIDOGREL BISULFATE [Suspect]
     Indication: THROMBOSIS PROPHYLAXIS
     Route: 048
     Dates: start: 20100326, end: 20100326
  4. CLOPIDOGREL BISULFATE [Suspect]
     Route: 048
     Dates: start: 20100327, end: 20100329
  5. CLOPIDOGREL BISULFATE [Suspect]
     Route: 048
     Dates: start: 20100327, end: 20100329
  6. CLOPIDOGREL BISULFATE [Suspect]
     Route: 048
     Dates: start: 20100327, end: 20100329
  7. ASPIRIN [Concomitant]
     Indication: ANGINA PECTORIS
     Route: 048
     Dates: start: 20100220
  8. ASPIRIN [Concomitant]
     Indication: ANTIPLATELET THERAPY
     Route: 048
     Dates: start: 20100220
  9. VASOLAN [Concomitant]
     Indication: VENTRICULAR ARRHYTHMIA
     Route: 048
     Dates: start: 20100324, end: 20100405
  10. NITROPEN [Concomitant]
     Indication: ANGINA PECTORIS
     Route: 060
     Dates: start: 20100129
  11. MICARDIS [Concomitant]
     Indication: HYPERTENSION
     Route: 048
     Dates: start: 19890101
  12. ALTAT [Concomitant]
     Route: 048
  13. FLUVASTATIN [Concomitant]
     Route: 048
     Dates: start: 19890101
  14. PRAMIPEXOLE [Concomitant]
     Route: 048
     Dates: start: 20070601
  15. MENESIT [Concomitant]
     Route: 048
     Dates: start: 20090529
  16. NEUROTROPIN [Concomitant]
     Indication: PAIN
     Route: 048
     Dates: start: 20080328
  17. JUVELA NICOTINATE [Concomitant]
     Route: 048
     Dates: start: 20061107
  18. METHYCOBAL [Concomitant]
     Indication: NEUROPATHY PERIPHERAL
     Route: 048
     Dates: start: 20061107
  19. CEROCRAL [Concomitant]
     Indication: DIZZINESS
     Route: 048
     Dates: start: 20061107
  20. TOUGHMAC E [Concomitant]
     Route: 048
     Dates: start: 20090528
  21. BISACODYL [Concomitant]
     Route: 048
     Dates: start: 20100324, end: 20100328

REACTIONS (1)
  - CARDIAC FAILURE [None]
